FAERS Safety Report 5586167-0 (Version None)
Quarter: 2008Q1

REPORT INFORMATION
  Report Type: 
  Country: None (occurrence: None)
  Receive Date: 20080107
  Receipt Date: 20071227
  Transmission Date: 20080703
  Serious: Yes (Death)
  Sender: FDA-Public Use
  Company Number: S07-USA-03825-01

PATIENT
  Age: 33 Year
  Sex: Male

DRUGS (9)
  1. LEXAPRO [Suspect]
     Indication: DEPRESSION
     Dosage: 10 MG, QD; PO
     Route: 048
     Dates: start: 20061116, end: 20061203
  2. LEXAPRO [Suspect]
     Indication: GENERALISED ANXIETY DISORDER
     Dosage: 10 MG, QD; PO
     Route: 048
     Dates: start: 20061116, end: 20061203
  3. GEODON [Suspect]
     Indication: BIPOLAR DISORDER
     Dosage: 80 MG QD;
     Dates: start: 20060415
  4. GEODON [Suspect]
     Indication: BIPOLAR DISORDER
     Dosage: 20 MG, BID,
     Dates: start: 20060412, end: 20060412
  5. GEODON [Suspect]
     Indication: BIPOLAR DISORDER
     Dosage: 40 MG, BID;
     Dates: start: 20060413, end: 20060413
  6. GEODON [Suspect]
     Indication: BIPOLAR DISORDER
     Dosage: 60 MG, BID;
     Dates: start: 20060414, end: 20060414
  7. LYRICA [Concomitant]
  8. GLUCOPHAGE [Concomitant]
  9. ESGIC (BUTALBITAL AND ACETAMINOPHEN) [Concomitant]

REACTIONS (2)
  - CARDIO-RESPIRATORY ARREST [None]
  - DIABETIC COMPLICATION [None]
